FAERS Safety Report 11625942 (Version 1)
Quarter: 2015Q4

REPORT INFORMATION
  Report Type: Not Available
  Country: US (occurrence: US)
  Receive Date: 20151013
  Receipt Date: 20151013
  Transmission Date: 20160304
  Serious: No
  Sender: FDA-Public Use
  Company Number: US-3M-2014-US-000001

PATIENT
  Sex: Female

DRUGS (1)
  1. PERIDEX [Suspect]
     Active Substance: CHLORHEXIDINE GLUCONATE
     Dosage: ORAL RINSE X 1
     Route: 048
     Dates: start: 20141209, end: 20141209

REACTIONS (6)
  - Dysgeusia [Unknown]
  - Oral pain [Unknown]
  - Reaction to drug excipients [None]
  - Stomatitis [None]
  - Oral discomfort [None]
  - Drug intolerance [None]

NARRATIVE: CASE EVENT DATE: 20141209
